FAERS Safety Report 8532839-5 (Version None)
Quarter: 2012Q3

REPORT INFORMATION
  Report Type: 
  Country: None (occurrence: None)
  Receive Date: 20120724
  Receipt Date: 20120713
  Transmission Date: 20120928
  Serious: Yes (Hospitalization)
  Sender: FDA-Public Use
  Company Number: DE-VERTEX PHARMACEUTICALS INC.-000000000000001210

PATIENT
  Age: 48 Year
  Sex: Male
  Weight: 63 kg

DRUGS (5)
  1. CETIRIZINE HCL [Concomitant]
     Dosage: DOSAGE FORM: UNSPECIFIED
     Route: 048
     Dates: start: 20120522
  2. PEGASYS [Concomitant]
     Indication: HEPATITIS C
     Dosage: DOSAGE FORM: INJECTION
     Route: 058
     Dates: start: 20120316
  3. TELAPREVIR [Suspect]
     Indication: HEPATITIS C
     Dosage: DOSAGE FORM: TABLET
     Route: 048
     Dates: start: 20120316, end: 20120607
  4. DERMATOP [Concomitant]
     Dosage: DOSAGE FORM: CREAM
     Route: 061
     Dates: start: 20120522
  5. COPEGUS [Concomitant]
     Indication: HEPATITIS C
     Dosage: DOSAGE FORM: UNSPECIFIED
     Route: 048
     Dates: start: 20120316

REACTIONS (1)
  - DERMATITIS ATOPIC [None]
